FAERS Safety Report 7783700-5 (Version None)
Quarter: 2011Q3

REPORT INFORMATION
  Report Type: 
  Country: None (occurrence: None)
  Receive Date: 20110928
  Receipt Date: 20110921
  Transmission Date: 20111222
  Serious: Yes (Hospitalization)
  Sender: FDA-Public Use
  Company Number: US-AMGEN-USASP2011048706

PATIENT
  Sex: Male

DRUGS (1)
  1. ENBREL [Suspect]
     Indication: PSORIASIS
     Dosage: 50 MG, 2 TIMES/WK
     Dates: start: 20000101, end: 20110601

REACTIONS (8)
  - PULMONARY EMBOLISM [None]
  - PSORIASIS [None]
  - PNEUMONIA [None]
  - LOWER LIMB FRACTURE [None]
  - INFLUENZA LIKE ILLNESS [None]
  - CELLULITIS [None]
  - THERAPEUTIC RESPONSE DECREASED [None]
  - MALAISE [None]
